FAERS Safety Report 12952038 (Version 2)
Quarter: 2017Q2

REPORT INFORMATION
  Report Type: Spontaneous
  Country: US (occurrence: US)
  Receive Date: 20161117
  Receipt Date: 20170517
  Transmission Date: 20170830
  Serious: No
  Sender: FDA-Public Use
  Company Number: US-SA-2016SA190884

PATIENT
  Age: 67 Year
  Sex: Male

DRUGS (12)
  1. SOLOSTAR [Concomitant]
     Active Substance: DEVICE
     Dates: start: 201610
  2. METFORMIN [Concomitant]
     Active Substance: METFORMIN HYDROCHLORIDE
  3. TOUJEO [Suspect]
     Active Substance: INSULIN GLARGINE
     Indication: TYPE 2 DIABETES MELLITUS
     Dosage: DOSE:18 UNIT(S)
     Route: 065
     Dates: start: 201610
  4. TOUJEO [Suspect]
     Active Substance: INSULIN GLARGINE
     Indication: TYPE 2 DIABETES MELLITUS
     Route: 065
     Dates: start: 20161221
  5. SOLOSTAR [Concomitant]
     Active Substance: DEVICE
     Dates: start: 20161004
  6. TOUJEO [Suspect]
     Active Substance: INSULIN GLARGINE
     Indication: TYPE 2 DIABETES MELLITUS
     Dosage: HE TOOK A ^BOOST^ OF 8 UNITS TODAY
     Route: 065
     Dates: start: 20161014
  7. SOLOSTAR [Concomitant]
     Active Substance: DEVICE
     Dates: start: 20161221
  8. HUMULIN R [Concomitant]
     Active Substance: INSULIN HUMAN
     Dates: end: 201610
  9. TOUJEO [Suspect]
     Active Substance: INSULIN GLARGINE
     Indication: TYPE 2 DIABETES MELLITUS
     Dosage: DOSE:40 UNIT(S)
     Route: 065
  10. SOLOSTAR [Concomitant]
     Active Substance: DEVICE
  11. TOUJEO [Suspect]
     Active Substance: INSULIN GLARGINE
     Indication: TYPE 2 DIABETES MELLITUS
     Dosage: DOSE:15 UNIT(S)
     Route: 065
     Dates: start: 20161004
  12. SOLOSTAR [Concomitant]
     Active Substance: DEVICE
     Dates: start: 20161014

REACTIONS (4)
  - Product use issue [Unknown]
  - Intentional product use issue [Unknown]
  - Spinal disorder [Unknown]
  - Blood glucose increased [Recovered/Resolved]

NARRATIVE: CASE EVENT DATE: 20161221
